FAERS Safety Report 12244975 (Version 2)
Quarter: 2016Q2

REPORT INFORMATION
  Report Type: Spontaneous
  Country: FI (occurrence: FI)
  Receive Date: 20160407
  Receipt Date: 20160505
  Transmission Date: 20160815
  Serious: Yes (Hospitalization, Disabling)
  Sender: FDA-Public Use
  Company Number: PHHY2016FI043456

PATIENT
  Age: 66 Year
  Sex: Male

DRUGS (21)
  1. ENTOCORT [Suspect]
     Active Substance: BUDESONIDE
     Indication: AUTOIMMUNE HEPATITIS
     Dosage: UNK
     Route: 048
     Dates: start: 20110828
  2. ENTOCORT [Suspect]
     Active Substance: BUDESONIDE
     Dosage: UNK
     Route: 048
  3. PREDNISOLON [Suspect]
     Active Substance: PREDNISOLONE
     Dosage: 10 MG, QD
     Route: 065
     Dates: start: 201412
  4. MYCOPHENOLIC ACID. [Suspect]
     Active Substance: MYCOPHENOLIC ACID
     Indication: AUTOIMMUNE HEPATITIS
     Dosage: 1 G, QD
     Route: 065
     Dates: start: 2015
  5. PREDNISOLON [Suspect]
     Active Substance: PREDNISOLONE
     Dosage: 5 MG, QD
     Route: 065
  6. MERCAPTOPURIN [Suspect]
     Active Substance: MERCAPTOPURINE
     Indication: AUTOIMMUNE HEPATITIS
     Dosage: UNK
     Route: 065
     Dates: start: 201305
  7. SANDIMMUN NEORAL [Suspect]
     Active Substance: CYCLOSPORINE
     Dosage: UNK
     Route: 048
     Dates: start: 2015, end: 2015
  8. SANDIMMUN NEORAL [Suspect]
     Active Substance: CYCLOSPORINE
     Dosage: 175 MG, QD (100 MG + 75 MG)
     Route: 048
     Dates: start: 2015, end: 20151109
  9. ENTOCORT [Suspect]
     Active Substance: BUDESONIDE
     Dosage: 6 MG, QD
     Route: 048
  10. AZATHIOPRINE. [Suspect]
     Active Substance: AZATHIOPRINE
     Indication: AUTOIMMUNE HEPATITIS
     Dosage: UNK
     Route: 065
     Dates: start: 2011
  11. PREDNISOLON [Suspect]
     Active Substance: PREDNISOLONE
     Dosage: 20 MG, QD
     Route: 065
  12. KALCIPOS-D [Concomitant]
     Active Substance: CALCIUM CARBONATE\CHOLECALCIFEROL
     Indication: PRODUCT USED FOR UNKNOWN INDICATION
     Dosage: 2 DF, QD
     Route: 048
     Dates: start: 20110415
  13. SANDIMMUN NEORAL [Suspect]
     Active Substance: CYCLOSPORINE
     Indication: AUTOIMMUNE HEPATITIS
     Dosage: 50 MG, BID
     Route: 048
     Dates: start: 20150602, end: 2015
  14. ADVAGRAF [Suspect]
     Active Substance: TACROLIMUS
     Indication: AUTOIMMUNE HEPATITIS
     Dosage: 3 MG, QD
     Route: 065
     Dates: start: 201505
  15. PREDNISOLON [Suspect]
     Active Substance: PREDNISOLONE
     Dosage: UNK
     Route: 065
  16. ENTOCORT [Suspect]
     Active Substance: BUDESONIDE
     Dosage: 6 MG, QD
     Route: 048
  17. ENTOCORT [Suspect]
     Active Substance: BUDESONIDE
     Dosage: 9 MG, QD
     Route: 048
  18. ENTOCORT [Suspect]
     Active Substance: BUDESONIDE
     Dosage: 6 MG, QD
     Route: 065
     Dates: start: 201501
  19. PREDNISOLON [Suspect]
     Active Substance: PREDNISOLONE
     Dosage: 5 MG, QD
     Route: 065
  20. PREDNISOLON [Suspect]
     Active Substance: PREDNISOLONE
     Dosage: 20 MG, QD
     Route: 065
     Dates: start: 201503
  21. PREDNISOLON [Suspect]
     Active Substance: PREDNISOLONE
     Indication: AUTOIMMUNE HEPATITIS
     Dosage: UNK
     Route: 065
     Dates: start: 2011

REACTIONS (59)
  - Dizziness [Unknown]
  - Oral discomfort [Unknown]
  - Osteoporosis [Unknown]
  - Cough [Unknown]
  - Erythema [Unknown]
  - Pain in extremity [Recovered/Resolved]
  - Petit mal epilepsy [Recovered/Resolved]
  - Paraesthesia [Unknown]
  - Immune system disorder [Unknown]
  - Urinary retention [Unknown]
  - Speech disorder [Recovered/Resolved]
  - Feeling hot [Unknown]
  - Confusional state [Unknown]
  - Hypotonia [Recovered/Resolved]
  - Nervousness [Unknown]
  - Hypoaesthesia [Recovered/Resolved]
  - Blood glucose increased [Unknown]
  - Renal impairment [Unknown]
  - Blood creatine increased [Unknown]
  - Hepatic enzyme increased [Unknown]
  - Condition aggravated [Unknown]
  - Apathy [Unknown]
  - Paraparesis [Unknown]
  - Dyspnoea [Unknown]
  - Vomiting [Unknown]
  - Paralysis [Unknown]
  - Varicella zoster virus infection [Recovered/Resolved with Sequelae]
  - Myelitis [Recovered/Resolved with Sequelae]
  - Dysmetria [Unknown]
  - Weight decreased [Unknown]
  - Compulsive cheek biting [Unknown]
  - Palpitations [Unknown]
  - Pain [Unknown]
  - Headache [Unknown]
  - Abdominal pain upper [Unknown]
  - Pyrexia [Recovered/Resolved]
  - Meningoradiculitis [Recovered/Resolved with Sequelae]
  - Seizure [Not Recovered/Not Resolved]
  - Limb discomfort [Unknown]
  - Dysarthria [Unknown]
  - Functional gastrointestinal disorder [Unknown]
  - Unresponsive to stimuli [Recovered/Resolved]
  - Hypoaesthesia [Unknown]
  - Product use issue [Unknown]
  - Hepatic enzyme abnormal [Unknown]
  - Pain in extremity [Unknown]
  - Pyrexia [Recovered/Resolved]
  - Cognitive disorder [Not Recovered/Not Resolved]
  - General physical health deterioration [Recovered/Resolved]
  - Tinnitus [Unknown]
  - Stress [Unknown]
  - Compression fracture [Unknown]
  - Epilepsy [Unknown]
  - Fatigue [Unknown]
  - Cerebral infarction [Recovered/Resolved with Sequelae]
  - Blood pressure increased [Unknown]
  - Oedema peripheral [Unknown]
  - Paraesthesia [Unknown]
  - Muscular weakness [Unknown]

NARRATIVE: CASE EVENT DATE: 2015
